FAERS Safety Report 17187236 (Version 2)
Quarter: 2020Q1

REPORT INFORMATION
  Report Type: Spontaneous
  Country: US (occurrence: US)
  Receive Date: 20191220
  Receipt Date: 20200120
  Transmission Date: 20200409
  Serious: Yes (Death, Hospitalization, Other)
  Sender: FDA-Public Use
  Company Number: US-GILEAD-2019-0443894

PATIENT
  Age: 58 Year
  Sex: Male
  Weight: 67 kg

DRUGS (14)
  1. FAMOTIDINE. [Concomitant]
     Active Substance: FAMOTIDINE
     Route: 042
  2. LORAZEPAM. [Concomitant]
     Active Substance: LORAZEPAM
     Route: 042
  3. POTASSIUM CHLORIDE. [Concomitant]
     Active Substance: POTASSIUM CHLORIDE
  4. KEPPRA [Concomitant]
     Active Substance: LEVETIRACETAM
     Route: 042
  5. THIAMINE. [Concomitant]
     Active Substance: THIAMINE
     Route: 042
  6. MAGNESIUM [Concomitant]
     Active Substance: MAGNESIUM
     Route: 042
  7. DEXAMETHASONE. [Concomitant]
     Active Substance: DEXAMETHASONE
     Route: 042
  8. ASCORBIC ACID. [Concomitant]
     Active Substance: ASCORBIC ACID
     Route: 042
  9. METOPROLOL. [Concomitant]
     Active Substance: METOPROLOL
     Route: 050
  10. LEVOTHYROXINE. [Concomitant]
     Active Substance: LEVOTHYROXINE
     Route: 050
  11. GENVOYA [Suspect]
     Active Substance: COBICISTAT\ELVITEGRAVIR\EMTRICITABINE\TENOFOVIR ALAFENAMIDE FUMARATE
     Indication: PRODUCT USED FOR UNKNOWN INDICATION
     Dosage: UNK
     Route: 050
  12. CEFTRIAXONE. [Concomitant]
     Active Substance: CEFTRIAXONE
     Route: 042
  13. FOLIC ACID. [Concomitant]
     Active Substance: FOLIC ACID
     Route: 042
  14. INSULIN [Concomitant]
     Active Substance: INSULIN NOS
     Route: 058

REACTIONS (4)
  - Cerebellar infarction [Fatal]
  - Toxic encephalopathy [Unknown]
  - Respiratory failure [Unknown]
  - Gastrointestinal tube insertion [Recovered/Resolved]

NARRATIVE: CASE EVENT DATE: 20191214
